FAERS Safety Report 7224818-5 (Version None)
Quarter: 2011Q1

REPORT INFORMATION
  Report Type: 
  Country: None (occurrence: None)
  Receive Date: 20110113
  Receipt Date: 20110104
  Transmission Date: 20110831
  Serious: Yes (Other)
  Sender: FDA-Public Use
  Company Number: US-SANOFI-AVENTIS-2011SA000715

PATIENT
  Age: 49 Year
  Sex: Female

DRUGS (1)
  1. ZOLPIDEM TARTRATE [Suspect]
     Route: 048

REACTIONS (2)
  - SOMNAMBULISM [None]
  - ROAD TRAFFIC ACCIDENT [None]
